FAERS Safety Report 5351353-1 (Version None)
Quarter: 2007Q2

REPORT INFORMATION
  Report Type: 
  Country: None (occurrence: None)
  Receive Date: 20070608
  Receipt Date: 20070530
  Transmission Date: 20071010
  Serious: Yes (Other)
  Sender: FDA-Public Use
  Company Number: JP-PFIZER INC-2007045195

PATIENT
  Age: 45 Year
  Sex: Male

DRUGS (2)
  1. SALAZOPYRIN [Suspect]
     Indication: CROHN'S DISEASE
     Dosage: DAILY DOSE:300MG
     Route: 048
  2. PREDNISOLONE [Concomitant]
     Route: 048

REACTIONS (1)
  - HODGKIN'S DISEASE [None]
